FAERS Safety Report 15644165 (Version 1)
Quarter: 2018Q4

REPORT INFORMATION
  Report Type: Spontaneous
  Country: CA (occurrence: CA)
  Receive Date: 20181121
  Receipt Date: 20181121
  Transmission Date: 20190205
  Serious: Yes (Other)
  Sender: FDA-Public Use
  Company Number: CA-PFIZER INC-2018478026

PATIENT
  Age: 16 Year
  Sex: Male

DRUGS (6)
  1. MORPHINE SULFATE. [Suspect]
     Active Substance: MORPHINE SULFATE
     Dosage: UNK
     Route: 065
  2. AMPHETAMINE [Suspect]
     Active Substance: AMPHETAMINE
     Dosage: UNK
     Route: 045
  3. COCAINE [Suspect]
     Active Substance: COCAINE
     Dosage: UNK
     Route: 065
  4. ALCOHOL. [Suspect]
     Active Substance: ALCOHOL
     Dosage: UNK
     Route: 065
  5. HYDROMORPHONE HCL [Suspect]
     Active Substance: HYDROMORPHONE HYDROCHLORIDE
     Dosage: UNK
     Route: 045
  6. MARIJUANA [Suspect]
     Active Substance: CANNABIS SATIVA SUBSP. INDICA TOP
     Dosage: UNK
     Route: 065

REACTIONS (4)
  - Alcohol abuse [Unknown]
  - Substance dependence [Unknown]
  - Substance abuse [Unknown]
  - Anxiety [Unknown]
